FAERS Safety Report 18957899 (Version 1)
Quarter: 2021Q1

REPORT INFORMATION
  Report Type: Spontaneous
  Country: US (occurrence: US)
  Receive Date: 20210302
  Receipt Date: 20210302
  Transmission Date: 20210420
  Serious: Yes (Death, Hospitalization, Other)
  Sender: FDA-Public Use
  Company Number: US-AMGEN-USASP2021030273

PATIENT

DRUGS (27)
  1. L?ASPARAGINASE [Concomitant]
     Active Substance: ASPARAGINASE
     Indication: ACUTE LYMPHOCYTIC LEUKAEMIA
     Dosage: 6000 INTERNATIONAL UNIT PER SQUARE METER, ON DAYS 5,8,11,15, 18,22
     Route: 058
  2. METHOTREXATE. [Concomitant]
     Active Substance: METHOTREXATE
     Dosage: 20 MILLIGRAM/SQ. METER,  DAYS 3 6, 43, 50, 57,64
     Route: 048
  3. CYTARABINE. [Concomitant]
     Active Substance: CYTARABINE
     Indication: ACUTE LYMPHOCYTIC LEUKAEMIA
     Dosage: 75 MILLIGRAM/SQ. METER, QD, DAYS 1?4, 8?11
     Route: 058
  4. PREDNISONE. [Concomitant]
     Active Substance: PREDNISONE
     Dosage: 60 MILLIGRAM/SQ. METER, QD, ON DAY 1 AND 7
     Route: 048
  5. L?ASPARAGINASE [Concomitant]
     Active Substance: ASPARAGINASE
     Dosage: 6000 INTERNATIONAL UNIT PER SQUARE METER, ON DAYS 5,8,11,15, 18,22
     Route: 030
  6. L?ASPARAGINASE [Concomitant]
     Active Substance: ASPARAGINASE
     Dosage: 6000 INTERNATIONAL UNIT PER SQUARE METER, ON DAYS 15,18, 22, 25
     Route: 058
  7. MERCAPTOPURINE ANHYDROUS [Concomitant]
     Active Substance: MERCAPTOPURINE
     Indication: ACUTE LYMPHOCYTIC LEUKAEMIA
     Dosage: 1000 MILLIGRAM/SQ. METER ON DAY 1
     Route: 048
  8. CYCLOPHOSPHAMIDE. [Concomitant]
     Active Substance: CYCLOPHOSPHAMIDE
     Dosage: 1000 MILLIGRAM/SQ. METER
     Route: 042
  9. COTRIMOXAZOLE [Concomitant]
     Active Substance: SULFAMETHOXAZOLE\TRIMETHOPRIM
     Indication: PROPHYLAXIS
  10. PENTAMIDINE [Concomitant]
     Active Substance: PENTAMIDINE
     Indication: PROPHYLAXIS
  11. FILGRASTIM [Suspect]
     Active Substance: FILGRASTIM
     Indication: NEUTROPENIA
     Dosage: 5 MICROGRAM/KILOGRAM, QD
     Route: 058
  12. DAUNORUBICIN [Concomitant]
     Active Substance: DAUNORUBICIN
     Dosage: 45 MILLIGRAM/SQ. METER, DAY 1, 8 AND 15
     Route: 042
  13. L?ASPARAGINASE [Concomitant]
     Active Substance: ASPARAGINASE
     Dosage: 6000 INTERNATIONAL UNIT PER SQUARE METER, ON DAYS 15,18, 22, 25
     Route: 030
  14. MERCAPTOPURINE ANHYDROUS [Concomitant]
     Active Substance: MERCAPTOPURINE
     Dosage: 60 MILLIGRAM/SQ. METER, QD, ON DAY 1 AND 28
     Route: 048
  15. METHOTREXATE. [Concomitant]
     Active Substance: METHOTREXATE
     Indication: ACUTE LYMPHOCYTIC LEUKAEMIA
     Dosage: 15 MILLIGRAM ON DAY ONE
     Route: 037
  16. MERCAPTOPURINE ANHYDROUS [Concomitant]
     Active Substance: MERCAPTOPURINE
     Dosage: 60 MILLIGRAM/SQ. METER, QD, ON DAY 1 AND 70
     Route: 048
  17. THIOGUANINE [Concomitant]
     Active Substance: THIOGUANINE
     Indication: ACUTE LYMPHOCYTIC LEUKAEMIA
     Dosage: 60 MILLIGRAM/SQ. METER, QD
     Route: 048
  18. CYCLOPHOSPHAMIDE. [Concomitant]
     Active Substance: CYCLOPHOSPHAMIDE
     Indication: ACUTE LYMPHOCYTIC LEUKAEMIA
     Dosage: 1200 MILLIGRAM/SQ. METER
     Route: 042
  19. VINCRISTINE [Concomitant]
     Active Substance: VINCRISTINE
     Indication: ACUTE LYMPHOCYTIC LEUKAEMIA
     Dosage: 2 MILLIGRAM, DAYS 1, 18, 15, 22
     Route: 042
  20. VINCRISTINE [Concomitant]
     Active Substance: VINCRISTINE
     Dosage: 2 MILLIGRAM, DAYS 15, 22
     Route: 042
  21. METHOTREXATE. [Concomitant]
     Active Substance: METHOTREXATE
     Dosage: 20 MILLIGRAM/SQ. METER,  DAYS 1, 8,15, 22
     Route: 048
  22. CYCLOPHOSPHAMIDE. [Concomitant]
     Active Substance: CYCLOPHOSPHAMIDE
     Dosage: 1000 MILLIGRAM/SQ. METER
     Route: 042
  23. PREDNISONE. [Concomitant]
     Active Substance: PREDNISONE
     Indication: ACUTE LYMPHOCYTIC LEUKAEMIA
     Dosage: 60 MILLIGRAM/SQ. METER, QD, ON DAY 1 AND 7
     Route: 042
  24. DAUNORUBICIN [Concomitant]
     Active Substance: DAUNORUBICIN
     Indication: ACUTE LYMPHOCYTIC LEUKAEMIA
     Dosage: 45 MILLIGRAM/SQ. METER, DAY 1, 2, 3
     Route: 042
  25. VINCRISTINE [Concomitant]
     Active Substance: VINCRISTINE
     Dosage: 2 MILLIGRAM, DAYS 1, 8, 15
     Route: 042
  26. VINCRISTINE [Concomitant]
     Active Substance: VINCRISTINE
     Dosage: 2 MILLIGRAM, DAY 1 OF EVERY 4 WEEK.
     Route: 042
  27. CYTARABINE. [Concomitant]
     Active Substance: CYTARABINE
     Dosage: 75 MILLIGRAM/SQ. METER, QD, DAYS 29?32, 36?39
     Route: 058

REACTIONS (8)
  - Thrombocytopenia [Unknown]
  - Hyperglycaemia [Unknown]
  - Multifocal motor neuropathy [Unknown]
  - Acute lymphocytic leukaemia recurrent [Unknown]
  - Death [Fatal]
  - Nausea [Unknown]
  - Neutropenia [Unknown]
  - Hypofibrinogenaemia [Unknown]
